FAERS Safety Report 24358163 (Version 1)
Quarter: 2024Q3

REPORT INFORMATION
  Report Type: Spontaneous
  Country: US (occurrence: None)
  Receive Date: 20240923
  Receipt Date: 20240923
  Transmission Date: 20241017
  Serious: Yes (Other)
  Sender: Public
  Company Number: None

PATIENT
  Age: 16 Year
  Sex: Male
  Weight: 76.5 kg

DRUGS (3)
  1. QELBREE [Suspect]
     Active Substance: VILOXAZINE HYDROCHLORIDE
     Indication: Attention deficit hyperactivity disorder
     Dosage: 1 CAPSULE ORAL ?
     Route: 048
     Dates: start: 20231227, end: 20240807
  2. ADDERALL [Concomitant]
     Active Substance: AMPHETAMINE ASPARTATE\AMPHETAMINE SULFATE\DEXTROAMPHETAMINE SACCHARATE\DEXTROAMPHETAMINE SULFATE
  3. BUPROPION [Concomitant]
     Active Substance: BUPROPION

REACTIONS (12)
  - Insomnia [None]
  - Drug intolerance [None]
  - Therapy change [None]
  - Nausea [None]
  - Diarrhoea [None]
  - Decreased appetite [None]
  - Headache [None]
  - Vomiting [None]
  - Aphasia [None]
  - Night sweats [None]
  - Agitation [None]
  - Weight decreased [None]

NARRATIVE: CASE EVENT DATE: 20240721
